FAERS Safety Report 8771284 (Version 1)
Quarter: 2012Q4

REPORT INFORMATION
  Report Type: 
  Country: BR (occurrence: BR)
  Receive Date: 20120906
  Receipt Date: 20120906
  Transmission Date: 20130627
  Serious: Yes (Other)
  Sender: FDA-Public Use
  Company Number: PHHY2012BR075555

PATIENT
  Age: 59 Year
  Sex: Female

DRUGS (13)
  1. DIOVAN AMLO FIX [Suspect]
     Dosage: 1 DF (160/5mg) daily
  2. DIOVAN AMLO FIX [Suspect]
     Dosage: 1 DF (160/10mg) daily
  3. GALVUS MET [Suspect]
     Dosage: 1 DF, BID
  4. AAS [Concomitant]
     Dosage: 100 mg, UNK
  5. CLOPIDOGREL [Concomitant]
     Dosage: 75 mg, UNK
  6. ROSUVASTATIN [Concomitant]
     Dosage: 10 mg, UNK
  7. METOPROLOL [Concomitant]
     Dosage: 100 mg, UNK
  8. METOPROLOL [Concomitant]
     Dosage: 200 mg daily
  9. LISINOPRIL [Concomitant]
     Indication: HYPERTENSION
     Dosage: 10 mg, UNK
  10. LISINOPRIL [Concomitant]
     Dosage: 20 mg, UNK
  11. SERTRALINE [Concomitant]
     Dosage: 50 mg daily
  12. SERTRALINE [Concomitant]
     Dosage: 100 mg daily
  13. OLCADIL [Concomitant]
     Dosage: 1 mg, BID

REACTIONS (7)
  - Diabetes mellitus [Recovering/Resolving]
  - Blood glucose increased [Recovering/Resolving]
  - Glycosylated haemoglobin increased [Unknown]
  - Blood pressure inadequately controlled [Unknown]
  - Depression [Unknown]
  - Anxiety [Unknown]
  - Metabolic syndrome [Unknown]
